FAERS Safety Report 7834072-9 (Version None)
Quarter: 2011Q4

REPORT INFORMATION
  Report Type: 
  Country: None (occurrence: None)
  Receive Date: 20111024
  Receipt Date: 20111024
  Transmission Date: 20120403
  Serious: Yes (Other)
  Sender: FDA-Public Use
  Company Number: None

PATIENT
  Age: 77 Year
  Sex: Male
  Weight: 80.739 kg

DRUGS (1)
  1. DEXILANT [Suspect]

REACTIONS (3)
  - RASH [None]
  - PRURITUS [None]
  - SKIN TIGHTNESS [None]
